FAERS Safety Report 4598292-1 (Version None)
Quarter: 2005Q2

REPORT INFORMATION
  Report Type: 
  Country: None (occurrence: None)
  Receive Date: 20050204
  Receipt Date: 20040604
  Transmission Date: 20051028
  Serious: Yes (Hospitalization)
  Sender: FDA-Public Use
  Company Number: PHEH2004US06227

PATIENT
  Age: 48 Year
  Sex: Male

DRUGS (9)
  1. CLOZARIL [Suspect]
     Indication: SCHIZOPHRENIA
     Dosage: 100 MG, TID, ORAL
     Route: 048
     Dates: start: 20011001, end: 20040301
  2. CLOZARIL [Suspect]
     Indication: SCHIZOPHRENIA
     Dosage: 100 MG, TID, ORAL
     Route: 048
     Dates: start: 20040501
  3. .... [Concomitant]
  4. RISPERDAL [Concomitant]
  5. LEXAPRO [Concomitant]
  6. ATIVAN [Concomitant]
  7. PROTONIX ^PHARMACIA^ (PANTOPRAZOLE) [Concomitant]
  8. PRAVACHOL [Concomitant]
  9. COLACE (DOCUSATE SODIUM) [Concomitant]

REACTIONS (4)
  - BLOOD CHOLESTEROL INCREASED [None]
  - CONFUSIONAL STATE [None]
  - DROOLING [None]
  - GASTROOESOPHAGEAL REFLUX DISEASE [None]
